FAERS Safety Report 4804396-8 (Version None)
Quarter: 2005Q4

REPORT INFORMATION
  Report Type: 
  Country: None (occurrence: None)
  Receive Date: 20051020
  Receipt Date: 20050829
  Transmission Date: 20060501
  Serious: Yes (Other)
  Sender: FDA-Public Use
  Company Number: US-GLAXOSMITHKLINE-A0572217A

PATIENT
  Age: 59 Year
  Sex: Male

DRUGS (4)
  1. AVANDIA [Suspect]
     Dosage: 2MG TWICE PER DAY
     Route: 048
     Dates: start: 20050815
  2. METFORMIN [Suspect]
     Dosage: 1000MG PER DAY
  3. INDAPAMIDE [Concomitant]
  4. STARLIX [Concomitant]

REACTIONS (5)
  - CONFUSIONAL STATE [None]
  - DIARRHOEA [None]
  - HYPOGLYCAEMIA [None]
  - INCONTINENCE [None]
  - SKIN ULCER [None]
